FAERS Safety Report 15703354 (Version 5)
Quarter: 2020Q2

REPORT INFORMATION
  Report Type: Report from Study
  Country: CO (occurrence: CO)
  Receive Date: 20181210
  Receipt Date: 20200624
  Transmission Date: 20200713
  Serious: Yes (Hospitalization)
  Sender: FDA-Public Use
  Company Number: CO-ACTELION-A-CH2018-183191

PATIENT
  Age: 82 Year
  Sex: Female
  Weight: 85 kg

DRUGS (7)
  1. OXYGEN. [Concomitant]
     Active Substance: OXYGEN
  2. OPSUMIT [Suspect]
     Active Substance: MACITENTAN
     Dosage: 10 MG, QD
     Route: 048
     Dates: start: 201912
  3. SILDENAFIL. [Concomitant]
     Active Substance: SILDENAFIL
     Dosage: UNK
     Route: 048
  4. OPSUMIT [Suspect]
     Active Substance: MACITENTAN
     Dosage: 10 MG, QD
     Route: 048
     Dates: start: 20130201, end: 20181008
  5. OPSUMIT [Suspect]
     Active Substance: MACITENTAN
     Indication: PULMONARY ARTERIAL HYPERTENSION
     Dosage: 10 MG, QD
     Route: 048
     Dates: start: 20181026, end: 20190430
  6. OPSUMIT [Suspect]
     Active Substance: MACITENTAN
     Dosage: 10 MG, QD
     Route: 048
     Dates: start: 20200512
  7. OPSUMIT [Suspect]
     Active Substance: MACITENTAN
     Dosage: 10 MG, QD
     Route: 048
     Dates: start: 20190504, end: 201911

REACTIONS (13)
  - Cardiac disorder [Recovering/Resolving]
  - Oxygen consumption increased [Not Recovered/Not Resolved]
  - Limb injury [Recovering/Resolving]
  - Abdominal distension [Not Recovered/Not Resolved]
  - Arrhythmia [Recovering/Resolving]
  - Wheelchair user [Not Recovered/Not Resolved]
  - Joint injury [Recovering/Resolving]
  - Fall [Recovering/Resolving]
  - Peripheral swelling [Unknown]
  - Fluid retention [Recovering/Resolving]
  - General physical health deterioration [Unknown]
  - Swelling face [Not Recovered/Not Resolved]
  - Ankle operation [Recovering/Resolving]

NARRATIVE: CASE EVENT DATE: 201811
